FAERS Safety Report 10070568 (Version 1)
Quarter: 2014Q2

REPORT INFORMATION
  Report Type: Spontaneous
  Country: NL (occurrence: NL)
  Receive Date: 20140410
  Receipt Date: 20140410
  Transmission Date: 20141212
  Serious: Yes (Hospitalization)
  Sender: FDA-Public Use
  Company Number: NL-ASTRAZENECA-2014SE22693

PATIENT
  Age: 67 Year
  Sex: Female

DRUGS (9)
  1. LISINOPRIL/HYDROCHLOROTHIAZIDE [Suspect]
     Dosage: 10/12.5 MG, 1 DF TAKEN AT NIGHT 9PM
     Route: 048
  2. ASCAL CARDIO [Concomitant]
     Route: 048
  3. METOPROLOL TARTRAAT [Concomitant]
     Route: 048
  4. AMLODIPINE MALEAAT [Concomitant]
     Route: 048
  5. OMEPRAZOL MGA [Concomitant]
     Route: 048
  6. EZETROL [Concomitant]
     Route: 048
  7. LIRAGLUTIDE INJVLST [Concomitant]
     Dosage: 6 MG/ML, 1.2 MG/ML DAILY
     Route: 058
  8. ATORVASTATINE KAUW [Concomitant]
     Dosage: 1DD1
     Route: 048
  9. MOVICOLON [Concomitant]
     Route: 048

REACTIONS (1)
  - Angioedema [Recovered/Resolved]
